FAERS Safety Report 6186112-3 (Version None)
Quarter: 2009Q2

REPORT INFORMATION
  Report Type: 
  Country: None (occurrence: None)
  Receive Date: 20090507
  Receipt Date: 20090507
  Transmission Date: 20091009
  Serious: No
  Sender: FDA-Public Use
  Company Number: None

PATIENT
  Sex: Male
  Weight: 24.1 kg

DRUGS (5)
  1. PEG-L-ASPARAGINASE (PEGASPARGASE, ONCOSPAR) [Suspect]
     Dosage: 2400 MG
     Dates: end: 20090503
  2. CYTARABINE [Suspect]
     Dosage: 70 MG
     Dates: end: 20090428
  3. DAUNORUBICIN HCL [Suspect]
     Dosage: 24 MG
     Dates: end: 20090430
  4. PREDNISONE [Suspect]
     Dosage: 330 MG
     Dates: end: 20090505
  5. VINCRISTINE SULFATE [Suspect]
     Dosage: 1.4 MG
     Dates: end: 20090430

REACTIONS (1)
  - URTICARIA [None]
